FAERS Safety Report 14471752 (Version 2)
Quarter: 2018Q2

REPORT INFORMATION
  Report Type: Spontaneous
  Country: US (occurrence: US)
  Receive Date: 20180131
  Receipt Date: 20180515
  Transmission Date: 20180711
  Serious: Yes (Hospitalization, Other)
  Sender: FDA-Public Use
  Company Number: US-DSJP-DSU-2017-139521

PATIENT

DRUGS (1)
  1. AZOR [Suspect]
     Active Substance: AMLODIPINE BESYLATE\OLMESARTAN MEDOXOMIL
     Indication: HYPERTENSION
     Dosage: 10/40 MG, QD
     Route: 048
     Dates: start: 20130123, end: 20160408

REACTIONS (8)
  - Gastrooesophageal reflux disease [Not Recovered/Not Resolved]
  - Sprue-like enteropathy [Recovering/Resolving]
  - Large intestine polyp [Unknown]
  - Incisional hernia [Unknown]
  - Gastritis erosive [Unknown]
  - Haemorrhoids [Unknown]
  - Diverticulum intestinal [Unknown]
  - Irritable bowel syndrome [Not Recovered/Not Resolved]

NARRATIVE: CASE EVENT DATE: 20130524
